FAERS Safety Report 25222498 (Version 2)
Quarter: 2025Q2

REPORT INFORMATION
  Report Type: Report from Study
  Country: CA (occurrence: CA)
  Receive Date: 20250421
  Receipt Date: 20250509
  Transmission Date: 20250717
  Serious: Yes (Death, Other)
  Sender: ABBVIE
  Company Number: CA-ABBVIE-6203741

PATIENT
  Age: 62 Year
  Sex: Female

DRUGS (75)
  1. VENETOCLAX [Suspect]
     Active Substance: VENETOCLAX
     Indication: Acute myeloid leukaemia
     Route: 048
     Dates: start: 20240610, end: 20240703
  2. VENETOCLAX [Suspect]
     Active Substance: VENETOCLAX
     Indication: Acute myeloid leukaemia
     Dosage: RAMP UP PHASE OF DOSING
     Route: 048
     Dates: start: 20240806, end: 20240812
  3. VENETOCLAX [Suspect]
     Active Substance: VENETOCLAX
     Indication: Acute myeloid leukaemia
     Dosage: RAMP UP PHASE OF DOSING
     Route: 048
     Dates: start: 20240503, end: 20240503
  4. VENETOCLAX [Suspect]
     Active Substance: VENETOCLAX
     Indication: Acute myeloid leukaemia
     Dosage: RAMP UP PHASE OF DOSING/DOSE INCREASE
     Route: 048
     Dates: start: 20240504, end: 20240504
  5. VENETOCLAX [Suspect]
     Active Substance: VENETOCLAX
     Indication: Acute myeloid leukaemia
     Dosage: DOSE INCREASED
     Route: 048
     Dates: start: 20240505, end: 20240505
  6. VENETOCLAX [Suspect]
     Active Substance: VENETOCLAX
     Indication: Acute myeloid leukaemia
     Dosage: DOSE REDUCTION/ DOSE REDUCTION TO NONE, HELD TO ALLOW PLATELET RECOVERING FOR UPCOMING CARDIAC CATH
     Route: 048
     Dates: start: 20240516, end: 20240516
  7. VENETOCLAX [Suspect]
     Active Substance: VENETOCLAX
     Indication: Acute myeloid leukaemia
     Dosage: RAMP UP PHASE OF DOSING/DOSE INCREASE
     Route: 048
     Dates: start: 20240517, end: 20240517
  8. VENETOCLAX [Suspect]
     Active Substance: VENETOCLAX
     Indication: Acute myeloid leukaemia
     Dosage: RAMP UP PHASE OF DOSING
     Route: 048
     Dates: start: 20240518, end: 20240609
  9. VENETOCLAX [Suspect]
     Active Substance: VENETOCLAX
     Indication: Acute myeloid leukaemia
     Route: 048
     Dates: start: 20240812
  10. HYDROXYUREA [Concomitant]
     Active Substance: HYDROXYUREA
     Indication: Neoplasm prophylaxis
     Route: 048
     Dates: start: 20240424, end: 20240429
  11. HYDROXYUREA [Concomitant]
     Active Substance: HYDROXYUREA
     Indication: Neoplasm prophylaxis
     Route: 048
     Dates: start: 20240501, end: 20240502
  12. HYDROXYUREA [Concomitant]
     Active Substance: HYDROXYUREA
     Indication: Neoplasm prophylaxis
     Route: 048
     Dates: start: 20240429, end: 20240501
  13. OXYGEN [Concomitant]
     Active Substance: OXYGEN
     Indication: Oxygen saturation decreased
     Route: 055
     Dates: start: 20240430, end: 20240528
  14. POTASSIUM CHLORIDE [Concomitant]
     Active Substance: POTASSIUM CHLORIDE
     Indication: Electrolyte substitution therapy
     Route: 048
     Dates: start: 20240430, end: 20240528
  15. POTASSIUM CHLORIDE [Concomitant]
     Active Substance: POTASSIUM CHLORIDE
     Indication: Electrolyte substitution therapy
     Route: 048
     Dates: start: 20240605
  16. COVID-19 vaccine mRNA [Concomitant]
     Indication: COVID-19 immunisation
  17. AZACITIDINE [Suspect]
     Active Substance: AZACITIDINE
     Indication: Acute myeloid leukaemia
     Dosage: DUE TO CLINIC HOURS DOSE NOT GIVEN OVER WEEKEND
     Route: 065
     Dates: start: 20240806, end: 20240809
  18. AZACITIDINE [Suspect]
     Active Substance: AZACITIDINE
     Indication: Acute myeloid leukaemia
     Route: 065
     Dates: start: 20240812, end: 20240814
  19. AZACITIDINE [Suspect]
     Active Substance: AZACITIDINE
     Indication: Acute myeloid leukaemia
     Dosage: DUE TO CLINIC HOURS AZACITIDINE WAS NOT GIVEN OVER WEEKEND
     Route: 065
     Dates: start: 20240610, end: 20240614
  20. AZACITIDINE [Suspect]
     Active Substance: AZACITIDINE
     Indication: Acute myeloid leukaemia
     Route: 065
     Dates: start: 20240617, end: 20240618
  21. AZACITIDINE [Suspect]
     Active Substance: AZACITIDINE
     Indication: Acute myeloid leukaemia
     Dosage: CHEMO ON HOLD UNTIL PLATELET RECOVERY (ABOVE 50) TO ARRANGE FOR CARDIAC CATH PROCEDURE.
     Route: 065
     Dates: start: 20240501, end: 20240504
  22. AZACITIDINE [Suspect]
     Active Substance: AZACITIDINE
     Indication: Acute myeloid leukaemia
     Route: 065
     Dates: start: 20240515, end: 20240517
  23. MELATONIN [Concomitant]
     Active Substance: MELATONIN
     Indication: Sleep disorder therapy
     Route: 048
     Dates: start: 20240430, end: 20240528
  24. MORPHINE SULFATE [Concomitant]
     Active Substance: MORPHINE SULFATE
     Indication: Analgesic therapy
     Route: 048
     Dates: start: 20240430, end: 20240514
  25. MORPHINE SULFATE [Concomitant]
     Active Substance: MORPHINE SULFATE
     Indication: Analgesic therapy
     Route: 042
     Dates: start: 20240515, end: 20240528
  26. FENTANYL CITRATE [Concomitant]
     Active Substance: FENTANYL CITRATE
     Indication: Analgesic intervention supportive therapy
     Route: 042
     Dates: start: 20240515, end: 20240522
  27. METOCLOPRAMIDE HYDROCHLORIDE [Concomitant]
     Active Substance: METOCLOPRAMIDE HYDROCHLORIDE
     Indication: Prophylaxis of nausea and vomiting
     Route: 042
     Dates: start: 20240515, end: 20240528
  28. CRESTOR [Concomitant]
     Active Substance: ROSUVASTATIN CALCIUM
     Indication: Product used for unknown indication
     Route: 048
     Dates: start: 20240517
  29. LUBRIDERM [Concomitant]
     Active Substance: AVOBENZONE\HOMOSALATE\OCTISALATE\OCTOCRYLENE\OXYBENZONE
     Indication: Dry skin prophylaxis
     Route: 061
     Dates: start: 20240518
  30. LOVENOX [Concomitant]
     Active Substance: ENOXAPARIN SODIUM
     Indication: Anticoagulant therapy
     Route: 058
     Dates: start: 20240522, end: 20240528
  31. LEVOFLOXACIN [Concomitant]
     Active Substance: LEVOFLOXACIN
     Indication: Prophylaxis
     Route: 048
     Dates: start: 20240527, end: 20240528
  32. LEVOFLOXACIN [Concomitant]
     Active Substance: LEVOFLOXACIN
     Indication: Prophylaxis
     Route: 048
     Dates: start: 20241003
  33. LEVOFLOXACIN [Concomitant]
     Active Substance: LEVOFLOXACIN
     Indication: Prophylaxis
     Route: 048
     Dates: start: 20240703, end: 20240903
  34. ASPIRIN [Concomitant]
     Active Substance: ASPIRIN
     Indication: Anticoagulant therapy
     Route: 048
     Dates: start: 20240612
  35. CALCIUM GLUCONATE [Concomitant]
     Active Substance: CALCIUM GLUCONATE
     Indication: Electrolyte substitution therapy
     Route: 042
     Dates: start: 20240430, end: 20240528
  36. MAGNESIUM SULFATE [Concomitant]
     Active Substance: MAGNESIUM SULFATE
     Indication: Electrolyte substitution therapy
     Route: 042
     Dates: start: 20240430, end: 20240528
  37. TYLENOL [Concomitant]
     Active Substance: ACETAMINOPHEN
     Indication: Antipyresis
     Route: 048
     Dates: start: 20240430, end: 20240528
  38. TYLENOL [Concomitant]
     Active Substance: ACETAMINOPHEN
     Indication: Antipyresis
     Route: 048
     Dates: start: 20240501, end: 20240528
  39. DIPHENHYDRAMINE HYDROCHLORIDE [Concomitant]
     Active Substance: DIPHENHYDRAMINE HYDROCHLORIDE
     Indication: Antiallergic therapy
     Dates: start: 20240430, end: 20240528
  40. DIPHENHYDRAMINE HYDROCHLORIDE [Concomitant]
     Active Substance: DIPHENHYDRAMINE HYDROCHLORIDE
     Indication: Antiallergic therapy
     Dosage: PO/IV
     Dates: start: 20240430, end: 20240528
  41. DIPHENHYDRAMINE HYDROCHLORIDE [Concomitant]
     Active Substance: DIPHENHYDRAMINE HYDROCHLORIDE
     Indication: Antiallergic therapy
     Route: 042
     Dates: start: 20240515, end: 20240516
  42. DIMENHYDRINATE [Concomitant]
     Active Substance: DIMENHYDRINATE
     Indication: Prophylaxis of nausea and vomiting
     Dates: start: 20240430, end: 20240528
  43. DIMENHYDRINATE [Concomitant]
     Active Substance: DIMENHYDRINATE
     Indication: Prophylaxis of nausea and vomiting
     Dates: start: 20240515, end: 20240528
  44. ONDANSETRON [Concomitant]
     Active Substance: ONDANSETRON
     Indication: Prophylaxis of nausea and vomiting
     Dates: start: 20240430, end: 20240528
  45. SENOKOT [Concomitant]
     Active Substance: SENNOSIDES
     Indication: Laxative supportive care
     Dates: start: 20240430, end: 20240528
  46. POLYETHYLENE GLYCOL 3350 [Concomitant]
     Active Substance: POLYETHYLENE GLYCOL 3350
     Indication: Laxative supportive care
     Route: 048
     Dates: start: 20240430, end: 20240528
  47. ALLOPURINOL [Concomitant]
     Active Substance: ALLOPURINOL
     Indication: Hyperuricaemia
     Route: 048
     Dates: start: 20240430, end: 20240501
  48. ALLOPURINOL [Concomitant]
     Active Substance: ALLOPURINOL
     Indication: Hyperuricaemia
     Route: 048
     Dates: start: 20240501
  49. ACYCLOVIR [Concomitant]
     Active Substance: ACYCLOVIR
     Indication: Antiviral treatment
     Route: 048
     Dates: start: 20240501
  50. FLUCONAZOLE [Concomitant]
     Active Substance: FLUCONAZOLE
     Indication: Antifungal treatment
     Route: 048
     Dates: start: 20240501
  51. GRANISETRON [Concomitant]
     Active Substance: GRANISETRON
     Indication: Prophylaxis of nausea and vomiting
     Route: 048
     Dates: start: 20240501, end: 20240528
  52. GRANISETRON [Concomitant]
     Active Substance: GRANISETRON
     Indication: Prophylaxis of nausea and vomiting
     Route: 048
     Dates: start: 20240610, end: 20240618
  53. GRANISETRON [Concomitant]
     Active Substance: GRANISETRON
     Indication: Prophylaxis of nausea and vomiting
     Route: 048
     Dates: start: 20240806, end: 20240814
  54. ATIVAN [Concomitant]
     Active Substance: LORAZEPAM
     Indication: Anxiolytic therapy
     Route: 060
     Dates: start: 20240502
  55. PROCHLORPERAZINE [Concomitant]
     Active Substance: PROCHLORPERAZINE
     Indication: Prophylaxis of nausea and vomiting
     Route: 048
     Dates: start: 20240502, end: 20240528
  56. PROCHLORPERAZINE [Concomitant]
     Active Substance: PROCHLORPERAZINE
     Indication: Prophylaxis of nausea and vomiting
     Route: 048
     Dates: start: 20240606
  57. LOPERAMIDE [Concomitant]
     Active Substance: LOPERAMIDE
     Indication: Prophylaxis against diarrhoea
     Route: 048
     Dates: start: 20240507
  58. BISOPROLOL [Concomitant]
     Active Substance: BISOPROLOL
     Indication: Blood pressure management
     Route: 048
     Dates: start: 20240505, end: 20240511
  59. BISOPROLOL [Concomitant]
     Active Substance: BISOPROLOL
     Indication: Blood pressure management
     Route: 048
     Dates: start: 20240511
  60. FUROSEMIDE [Concomitant]
     Active Substance: FUROSEMIDE
     Indication: Diuretic therapy
     Route: 048
     Dates: start: 20240509, end: 20240510
  61. RAMIPRIL [Concomitant]
     Active Substance: RAMIPRIL
     Indication: Blood pressure management
     Route: 048
     Dates: start: 20240510
  62. NITROGLYCERIN [Concomitant]
     Active Substance: NITROGLYCERIN
     Indication: Chest pain
     Route: 060
     Dates: start: 20240515, end: 20240528
  63. FILGRASTIM [Concomitant]
     Active Substance: FILGRASTIM
     Indication: Neutrophil count decreased
     Route: 058
     Dates: start: 20240708, end: 20240824
  64. FILGRASTIM [Concomitant]
     Active Substance: FILGRASTIM
     Indication: Neutrophil count decreased
     Route: 058
     Dates: start: 20240725, end: 20240731
  65. FILGRASTIM [Concomitant]
     Active Substance: FILGRASTIM
     Indication: Neutrophil count decreased
     Route: 058
     Dates: start: 20240819, end: 20240830
  66. FILGRASTIM [Concomitant]
     Active Substance: FILGRASTIM
     Indication: Neutrophil count decreased
     Route: 058
     Dates: start: 20240903, end: 20240908
  67. SODIUM CHLORIDE [Concomitant]
     Active Substance: SODIUM CHLORIDE
     Indication: Fluid replacement
     Route: 042
     Dates: start: 20240627, end: 20240627
  68. SODIUM CHLORIDE [Concomitant]
     Active Substance: SODIUM CHLORIDE
     Indication: Fluid replacement
     Route: 042
     Dates: start: 20240629, end: 20240629
  69. PREDNISONE [Concomitant]
     Active Substance: PREDNISONE
     Indication: Cough
     Route: 048
     Dates: start: 20241007, end: 20241011
  70. MEROPENEM [Concomitant]
     Active Substance: MEROPENEM
     Indication: Antibiotic therapy
     Route: 042
     Dates: start: 20240713, end: 20240724
  71. MEROPENEM [Concomitant]
     Active Substance: MEROPENEM
     Indication: Antibiotic therapy
     Route: 042
     Dates: start: 20240430, end: 20240514
  72. MEROPENEM [Concomitant]
     Active Substance: MEROPENEM
     Indication: Antibiotic therapy
     Route: 042
     Dates: start: 20240524, end: 20240527
  73. PANTOPRAZOLE SODIUM [Concomitant]
     Active Substance: PANTOPRAZOLE SODIUM
     Indication: Gastrooesophageal reflux disease
     Route: 048
     Dates: start: 20240430
  74. ATROVENT [Concomitant]
     Active Substance: IPRATROPIUM BROMIDE
     Indication: Chronic obstructive pulmonary disease
     Dosage: 1 PUFF
     Route: 055
     Dates: start: 20240430, end: 20240528
  75. VENTOLIN [Concomitant]
     Active Substance: ALBUTEROL SULFATE
     Indication: Chronic obstructive pulmonary disease
     Dosage: PUFFER   2 PUFFS
     Route: 055
     Dates: start: 20241007

REACTIONS (1)
  - Acute myeloid leukaemia [Fatal]

NARRATIVE: CASE EVENT DATE: 20241014
